FAERS Safety Report 20316909 (Version 3)
Quarter: 2022Q1

REPORT INFORMATION
  Report Type: Report from Study
  Country: DE (occurrence: DE)
  Receive Date: 20220110
  Receipt Date: 20220227
  Transmission Date: 20220423
  Serious: Yes (Hospitalization, Other)
  Sender: FDA-Public Use
  Company Number: DE-NOVARTISPH-NVSC2021DE230103

PATIENT
  Sex: Female
  Weight: 58.5 kg

DRUGS (18)
  1. ELTROMBOPAG OLAMINE [Suspect]
     Active Substance: ELTROMBOPAG OLAMINE
     Indication: Immune thrombocytopenia
     Dosage: 50 MG, QD (TABLET)
     Route: 048
     Dates: start: 20210608, end: 20210816
  2. ELTROMBOPAG OLAMINE [Suspect]
     Active Substance: ELTROMBOPAG OLAMINE
     Dosage: 75 MG, QD (TABLET)
     Route: 048
     Dates: start: 20210817, end: 20211004
  3. ELTROMBOPAG OLAMINE [Suspect]
     Active Substance: ELTROMBOPAG OLAMINE
     Dosage: 50 MG, QD (TABLET)
     Route: 048
     Dates: start: 20211014, end: 20211123
  4. PREDNISOLONE [Suspect]
     Active Substance: PREDNISOLONE
     Indication: Immune thrombocytopenia
     Dosage: 20 MG, ONCE/SINGLE
     Route: 048
     Dates: start: 20210902, end: 20210908
  5. PREDNISOLONE [Suspect]
     Active Substance: PREDNISOLONE
     Dosage: 10 MG, ONCE/SINGLE
     Route: 048
     Dates: start: 20210909, end: 20210915
  6. PREDNISOLONE [Suspect]
     Active Substance: PREDNISOLONE
     Dosage: 5 MG, ONCE/SINGLE
     Route: 048
     Dates: start: 20210916, end: 20210922
  7. PREDNISOLONE [Suspect]
     Active Substance: PREDNISOLONE
     Dosage: 2.5 MG, ONCE/SINGLE
     Route: 048
     Dates: start: 20210923, end: 20210930
  8. PREDNISOLONE [Suspect]
     Active Substance: PREDNISOLONE
     Dosage: 20 MG, ONCE/SINGLE
     Route: 048
     Dates: start: 20211207, end: 20211220
  9. PREDNISOLONE [Suspect]
     Active Substance: PREDNISOLONE
     Dosage: 15 MG, ONCE/SINGLE
     Route: 048
     Dates: start: 20211221, end: 20220102
  10. PREDNISOLONE [Suspect]
     Active Substance: PREDNISOLONE
     Dosage: 12.5 MG, ONCE/SINGLE
     Route: 048
     Dates: start: 20220103, end: 20220126
  11. PREDNISOLONE [Suspect]
     Active Substance: PREDNISOLONE
     Dosage: 7.5 MG, ONCE/SINGLE
     Route: 048
     Dates: start: 20220127
  12. CANDESARTAN [Concomitant]
     Active Substance: CANDESARTAN
     Indication: Hypertension
     Dosage: 32 MG, QD (IN THE MORNING)
     Route: 048
     Dates: start: 20180206
  13. AMLODIPINE [Concomitant]
     Active Substance: AMLODIPINE BESYLATE
     Indication: Hypertension
     Dosage: 5 MG, QD (IN THE MORNING)
     Route: 048
     Dates: start: 20210511
  14. FLUOXETINE [Concomitant]
     Active Substance: FLUOXETINE HYDROCHLORIDE
     Indication: Depression
     Dosage: 20 MG, ONCE/SINGLE
     Route: 048
     Dates: start: 2005
  15. FLUOXETINE [Concomitant]
     Active Substance: FLUOXETINE HYDROCHLORIDE
     Dosage: 20 MG, QD (IN THE MORNING)
     Route: 048
     Dates: start: 2009
  16. ENOXAPARIN SODIUM [Concomitant]
     Active Substance: ENOXAPARIN SODIUM
     Indication: Anticoagulant therapy
     Dosage: 6000 IU, ONCE/SINGLE
     Route: 058
     Dates: start: 20211012, end: 20211013
  17. ENOXAPARIN SODIUM [Concomitant]
     Active Substance: ENOXAPARIN SODIUM
     Dosage: 10000 IU, ONCE/SINGLE
     Route: 058
     Dates: start: 20211014
  18. ENOXAPARIN SODIUM [Concomitant]
     Active Substance: ENOXAPARIN SODIUM
     Dosage: 4000 IU, ONCE/SINGLE
     Route: 058
     Dates: start: 20211115

REACTIONS (8)
  - Cerebral venous sinus thrombosis [Recovered/Resolved]
  - Headache [Recovered/Resolved]
  - Cerebral infarction [Unknown]
  - Thrombocytopenia [Recovered/Resolved]
  - Thrombocytopenia [Not Recovered/Not Resolved]
  - Systemic lupus erythematosus [Not Recovered/Not Resolved]
  - Therapeutic response decreased [Recovering/Resolving]
  - Drug ineffective [Unknown]

NARRATIVE: CASE EVENT DATE: 20210902
